FAERS Safety Report 13738058 (Version 1)
Quarter: 2017Q3

REPORT INFORMATION
  Report Type: Spontaneous
  Country: CN (occurrence: CN)
  Receive Date: 20170710
  Receipt Date: 20170710
  Transmission Date: 20171127
  Serious: Yes (Hospitalization)
  Sender: FDA-Public Use
  Company Number: CN-PFIZER INC-2017294357

PATIENT
  Age: 4 Year
  Sex: Female
  Weight: 4 kg

DRUGS (4)
  1. GLUCOSE [Suspect]
     Active Substance: DEXTROSE
     Indication: DYSPNOEA
  2. METHYLPREDNISOLONE SODIUM SUCCINATE. [Suspect]
     Active Substance: METHYLPREDNISOLONE SODIUM SUCCINATE
     Indication: DYSPNOEA
  3. METHYLPREDNISOLONE SODIUM SUCCINATE. [Suspect]
     Active Substance: METHYLPREDNISOLONE SODIUM SUCCINATE
     Indication: INFLAMMATION
     Dosage: 15 MG, ONCE PER DAY
     Route: 041
     Dates: start: 20170523, end: 20170523
  4. GLUCOSE [Suspect]
     Active Substance: DEXTROSE
     Indication: INFLAMMATION
     Dosage: 100 ML, ONCE PER DAY
     Route: 041
     Dates: start: 20170523, end: 20170523

REACTIONS (3)
  - Pruritus [Recovered/Resolved]
  - Urticaria [Recovered/Resolved]
  - Rash [Recovered/Resolved]

NARRATIVE: CASE EVENT DATE: 20170523
